FAERS Safety Report 6234403-X (Version None)
Quarter: 2009Q2

REPORT INFORMATION
  Report Type: 
  Country: None (occurrence: None)
  Receive Date: 20090618
  Receipt Date: 20090609
  Transmission Date: 20091009
  Serious: Yes (Other)
  Sender: FDA-Public Use
  Company Number: US-ROCHE-632391

PATIENT
  Sex: Male
  Weight: 79.4 kg

DRUGS (3)
  1. ACCUTANE [Suspect]
     Indication: ACNE
     Dosage: FREQUENCY: QD
     Route: 048
     Dates: start: 20070401, end: 20071001
  2. LEXAPRO [Concomitant]
     Indication: DEPRESSION
  3. CETRIZINE [Concomitant]
     Dosage: DOSE: 1 QD; FREQUENCY: PRN
     Route: 048

REACTIONS (3)
  - DEPRESSION [None]
  - HYPERTENSION [None]
  - SINUSITIS [None]
